FAERS Safety Report 23716527 (Version 3)
Quarter: 2025Q4

REPORT INFORMATION
  Report Type: Spontaneous
  Country: EU (occurrence: EU)
  Receive Date: 20240408
  Receipt Date: 20251010
  Transmission Date: 20260117
  Serious: Yes (Life-Threatening, Hospitalization, Other)
  Sender: BRISTOL-MYERS SQUIBB COMPANY
  Company Number: None

PATIENT
  Age: 47 Year
  Sex: Male

DRUGS (2)
  1. YERVOY [Suspect]
     Active Substance: IPILIMUMAB
     Indication: Metastatic malignant melanoma
     Dates: start: 20240124, end: 20240313
  2. OPDIVO [Suspect]
     Active Substance: NIVOLUMAB
     Indication: Metastatic malignant melanoma
     Dates: start: 20240124, end: 20240313

REACTIONS (8)
  - Diabetic ketoacidosis [Recovered/Resolved with Sequelae]
  - Colitis [Recovered/Resolved]
  - Hypothyroidism [Not Recovered/Not Resolved]
  - Pancreatic failure [Recovered/Resolved]
  - Sinusitis [Recovered/Resolved]
  - Punctate keratitis [Recovered/Resolved]
  - Parotitis [Recovered/Resolved]
  - Polyarthritis [Recovering/Resolving]

NARRATIVE: CASE EVENT DATE: 20240317
